FAERS Safety Report 9412277 (Version 1)
Quarter: 2013Q2

REPORT INFORMATION
  Report Type: Spontaneous
  Country: JP (occurrence: JP)
  Receive Date: 20130418
  Receipt Date: 20130418
  Transmission Date: 20140414
  Serious: Yes (Hospitalization, Other)
  Sender: FDA-Public Use
  Company Number: ENT 2013-0074

PATIENT
  Age: 83 Year
  Sex: Female

DRUGS (2)
  1. ENTACAPONE [Suspect]
     Indication: PARKINSON^S DISEASE
     Route: 048
     Dates: start: 201108
  2. LEVODOPA-CARBIDOPA [Concomitant]

REACTIONS (3)
  - Drug ineffective [None]
  - Product quality issue [None]
  - Cerebral haemorrhage [None]
